FAERS Safety Report 10186722 (Version 2)
Quarter: 2014Q2

REPORT INFORMATION
  Report Type: Spontaneous
  Country: JP (occurrence: JP)
  Receive Date: 20140521
  Receipt Date: 20140619
  Transmission Date: 20141212
  Serious: No
  Sender: FDA-Public Use
  Company Number: CHPA2014JP006487

PATIENT
  Sex: 0

DRUGS (1)
  1. LAMISIL [Suspect]
     Dosage: UNK
     Route: 048

REACTIONS (2)
  - Accidental exposure to product by child [Unknown]
  - Drug administered to patient of inappropriate age [Unknown]
